FAERS Safety Report 4896398-0 (Version None)
Quarter: 2006Q1

REPORT INFORMATION
  Report Type: 
  Country: None (occurrence: None)
  Receive Date: 20060131
  Receipt Date: 20051205
  Transmission Date: 20060701
  Serious: Yes (Death)
  Sender: FDA-Public Use
  Company Number: US-BRISTOL-MYERS SQUIBB COMPANY-13204938

PATIENT
  Age: 89 Year

DRUGS (5)
  1. COUMADIN [Suspect]
     Indication: ATRIAL FIBRILLATION
     Route: 048
     Dates: start: 19921101, end: 20051113
  2. ZEBETA [Concomitant]
  3. LORAZEPAM [Concomitant]
     Dosage: AT BEDTIME
  4. GLYBURIDE [Concomitant]
  5. VERAPAMIL [Concomitant]

REACTIONS (1)
  - CEREBROVASCULAR ACCIDENT [None]
